FAERS Safety Report 10183222 (Version 3)
Quarter: 2014Q3

REPORT INFORMATION
  Report Type: Spontaneous
  Country: GB (occurrence: GB)
  Receive Date: 20140520
  Receipt Date: 20140904
  Transmission Date: 20150326
  Serious: Yes (Hospitalization, Other)
  Sender: FDA-Public Use
  Company Number: GB-TEVA-480048ISR

PATIENT
  Age: 20 Year
  Sex: Male
  Weight: 76 kg

DRUGS (12)
  1. DOXORUBICIN [Concomitant]
     Active Substance: DOXORUBICIN
  2. METOCLOPRAMIDE. [Concomitant]
     Active Substance: METOCLOPRAMIDE
  3. ONDANSETRON [Concomitant]
     Active Substance: ONDANSETRON
  4. PARACETAMOL [Concomitant]
     Active Substance: ACETAMINOPHEN
  5. MIFAMURTIDE SODIUM [Interacting]
     Active Substance: MIFAMURTIDE
     Indication: OSTEOSARCOMA
     Dosage: WAS GIVEN 6 HOURS AFTER METHOTREXATE ON 15-APR-2014, 2 X 4 MG IN 1 WEEK
     Route: 042
     Dates: start: 20140317, end: 20140415
  6. FILGRASTIM [Concomitant]
     Active Substance: FILGRASTIM
  7. CALCIUM LEVOFOLINATE [Concomitant]
     Active Substance: LEVOLEUCOVORIN CALCIUM
  8. METHOTREXATE [Suspect]
     Active Substance: METHOTREXATE
     Indication: OSTEOSARCOMA
     Route: 042
     Dates: start: 20131202, end: 20140415
  9. CISPLATIN. [Concomitant]
     Active Substance: CISPLATIN
     Indication: OSTEOSARCOMA
     Dates: start: 201308
  10. DEXAMETHASONE. [Concomitant]
     Active Substance: DEXAMETHASONE
  11. SODIUM BICARBONATE. [Concomitant]
     Active Substance: SODIUM BICARBONATE
  12. APREPITANT [Concomitant]
     Active Substance: APREPITANT

REACTIONS (6)
  - Inappropriate schedule of drug administration [Recovering/Resolving]
  - Blood creatinine increased [Not Recovered/Not Resolved]
  - Chemotherapeutic drug level increased [Recovered/Resolved]
  - Renal impairment [Recovering/Resolving]
  - Potentiating drug interaction [Unknown]
  - Drug clearance decreased [Recovered/Resolved]

NARRATIVE: CASE EVENT DATE: 20140416
